FAERS Safety Report 8313717-3 (Version None)
Quarter: 2012Q2

REPORT INFORMATION
  Report Type: 
  Country: None (occurrence: None)
  Receive Date: 20120426
  Receipt Date: 20120423
  Transmission Date: 20120825
  Serious: Yes (Other)
  Sender: FDA-Public Use
  Company Number: PHEH2012US008186

PATIENT
  Sex: Male

DRUGS (9)
  1. ACETYLSALICYLIC ACID SRT [Concomitant]
  2. COUMADIN [Concomitant]
  3. WELLBUTRIN [Concomitant]
  4. XANAX [Concomitant]
  5. KLOR-CON [Concomitant]
  6. LIPITOR [Concomitant]
  7. DIOVAN [Suspect]
     Dosage: UNK UKN, UNK
  8. LORATADINE [Concomitant]
  9. CHLORTHALIDONE [Concomitant]

REACTIONS (2)
  - CARDIAC DISORDER [None]
  - BLOOD PRESSURE INCREASED [None]
